FAERS Safety Report 24340514 (Version 1)
Quarter: 2024Q3

REPORT INFORMATION
  Report Type: Spontaneous
  Country: US (occurrence: US)
  Receive Date: 20240919
  Receipt Date: 20240919
  Transmission Date: 20241016
  Serious: Yes (Other)
  Sender: JOHNSON AND JOHNSON
  Company Number: US-JNJFOC-20240929533

PATIENT
  Sex: Female

DRUGS (3)
  1. XARELTO [Suspect]
     Active Substance: RIVAROXABAN
     Indication: Factor V Leiden mutation
     Dosage: GTIN NUMBER 00350458580303?SERIAL NUMBER : 100006860401
     Route: 048
  2. XARELTO [Suspect]
     Active Substance: RIVAROXABAN
     Indication: Factor V Leiden mutation
  3. XARELTO [Suspect]
     Active Substance: RIVAROXABAN
     Indication: Deep vein thrombosis

REACTIONS (6)
  - Intestinal resection [Unknown]
  - Arterial thrombosis [Unknown]
  - Incisional hernia [Unknown]
  - Muscle spasms [Unknown]
  - Fatigue [Unknown]
  - Limb injury [Unknown]
